FAERS Safety Report 5520096-3 (Version None)
Quarter: 2007Q4

REPORT INFORMATION
  Report Type: 
  Country: None (occurrence: None)
  Receive Date: 20071116
  Receipt Date: 20071106
  Transmission Date: 20080405
  Serious: Yes (Other)
  Sender: FDA-Public Use
  Company Number: JP-SHR-JP-2007-043180

PATIENT
  Age: 48 Year
  Sex: Male

DRUGS (5)
  1. SOTALOL HCL [Suspect]
     Indication: ATRIAL FIBRILLATION
     Dosage: 40 MG, 1X/DAY
     Route: 048
     Dates: start: 20060324, end: 20060324
  2. ASPIRIN [Concomitant]
     Dosage: UNK, UNK
     Route: 048
     Dates: start: 20060324, end: 20060324
  3. ARTIST [Concomitant]
     Dosage: UNK, UNK
     Route: 048
     Dates: start: 20060324, end: 20060418
  4. LASIX [Concomitant]
     Dosage: UNK, UNK
     Route: 048
     Dates: start: 20060324, end: 20060324
  5. ALDACTONE [Concomitant]
     Dosage: UNK, UNK
     Route: 048
     Dates: start: 20060324, end: 20060324

REACTIONS (2)
  - ATRIAL FIBRILLATION [None]
  - SHOCK [None]
